FAERS Safety Report 4460008-7 (Version None)
Quarter: 2004Q3

REPORT INFORMATION
  Report Type: 
  Country: None (occurrence: None)
  Receive Date: 20040928
  Receipt Date: 20030924
  Transmission Date: 20050211
  Serious: No
  Sender: FDA-Public Use
  Company Number: US-GLAXOSMITHKLINE-A0427355A

PATIENT
  Age: 73 Year
  Sex: Male

DRUGS (12)
  1. SEREVENT [Suspect]
     Indication: ASTHMA
     Dosage: 1PUFF TWICE PER DAY
     Route: 055
     Dates: start: 20030905
  2. ATROVENT [Concomitant]
  3. ALBUTEROL [Concomitant]
  4. AZMACORT [Concomitant]
  5. SYNTHROID [Concomitant]
  6. LIPITOR [Concomitant]
  7. PROCARDIA [Concomitant]
  8. SINGULAIR [Concomitant]
  9. HYTRIN [Concomitant]
  10. ASPIRIN [Concomitant]
  11. POTASSIUM [Concomitant]
  12. VIOXX [Concomitant]

REACTIONS (1)
  - PEAK EXPIRATORY FLOW RATE DECREASED [None]
